FAERS Safety Report 7756997-5 (Version None)
Quarter: 2011Q3

REPORT INFORMATION
  Report Type: 
  Country: None (occurrence: None)
  Receive Date: 20110916
  Receipt Date: 20110916
  Transmission Date: 20111222
  Serious: Yes (Death)
  Sender: FDA-Public Use
  Company Number: None

PATIENT
  Sex: Female
  Weight: 83.914 kg

DRUGS (1)
  1. AVANDAMET [Suspect]
     Indication: DIABETES MELLITUS
     Route: 048
     Dates: start: 20020801, end: 20110109

REACTIONS (8)
  - WEIGHT INCREASED [None]
  - CARDIAC DISORDER [None]
  - NAUSEA [None]
  - PAIN IN EXTREMITY [None]
  - FEELING ABNORMAL [None]
  - MYOCARDIAL INFARCTION [None]
  - OEDEMA PERIPHERAL [None]
  - ABDOMINAL DISTENSION [None]
